FAERS Safety Report 4296336-8 (Version None)
Quarter: 2004Q1

REPORT INFORMATION
  Report Type: 
  Country: None (occurrence: None)
  Receive Date: 20040213
  Receipt Date: 20040213
  Transmission Date: 20041129
  Serious: Yes (Hospitalization)
  Sender: FDA-Public Use
  Company Number: None

PATIENT
  Sex: Female
  Weight: 47.6277 kg

DRUGS (2)
  1. NAPROSYN [Suspect]
     Indication: OSTEOARTHRITIS
     Dosage: PO
     Route: 048
  2. DILTIAZEM [Concomitant]

REACTIONS (6)
  - ABDOMINAL PAIN UPPER [None]
  - BRADYCARDIA [None]
  - DYSPEPSIA [None]
  - LOOSE STOOLS [None]
  - NAUSEA [None]
  - VOMITING [None]
